FAERS Safety Report 5417740-8 (Version None)
Quarter: 2007Q3

REPORT INFORMATION
  Report Type: 
  Country: None (occurrence: None)
  Receive Date: 20070815
  Receipt Date: 20070815
  Transmission Date: 20080115
  Serious: Yes (Hospitalization)
  Sender: FDA-Public Use
  Company Number: None

PATIENT
  Sex: Female
  Weight: 87.9978 kg

DRUGS (6)
  1. COUMADIN [Suspect]
     Indication: ATRIAL FIBRILLATION
     Dosage: PO,   (THERAPY DATES: PRIOR TO ADMISSION)
     Route: 048
  2. SYNTHROID [Concomitant]
  3. ACCUPRIL [Concomitant]
  4. HYDROCHLOROTHIAZIDE [Concomitant]
  5. ZOCOR [Concomitant]
  6. TOPROL-XL [Concomitant]

REACTIONS (2)
  - COAGULOPATHY [None]
  - PROTHROMBIN TIME ABNORMAL [None]
